FAERS Safety Report 4577143-5 (Version None)
Quarter: 2005Q1

REPORT INFORMATION
  Report Type: 
  Country: None (occurrence: None)
  Receive Date: 20050207
  Receipt Date: 20050121
  Transmission Date: 20050727
  Serious: Yes (Other)
  Sender: FDA-Public Use
  Company Number: B0366054A

PATIENT
  Age: 24 Month
  Sex: Male

DRUGS (6)
  1. ZOVIRAX [Suspect]
     Indication: ENCEPHALITIS HERPES
     Dosage: 45 MG/KG/ PER DAY / INTRAVENOUS
     Route: 042
  2. DEXAMETHASONE [Concomitant]
  3. CEFTRIAXONE [Concomitant]
  4. LORAZEPAM [Concomitant]
  5. PHENOBARBITONE [Concomitant]
  6. PHENYTOIN [Concomitant]

REACTIONS (4)
  - APALLIC SYNDROME [None]
  - DISEASE RECURRENCE [None]
  - DRUG INEFFECTIVE [None]
  - ENCEPHALITIS HERPES [None]
